FAERS Safety Report 8114093-1 (Version None)
Quarter: 2012Q1

REPORT INFORMATION
  Report Type: 
  Country: None (occurrence: None)
  Receive Date: 20120203
  Receipt Date: 20120125
  Transmission Date: 20120608
  Serious: Yes (Other)
  Sender: FDA-Public Use
  Company Number: NL-ASTRAZENECA-2012SE05331

PATIENT
  Age: 6 Month
  Sex: Female
  Weight: 5 kg

DRUGS (1)
  1. ESOMEPRAZOLE MAGNESIUM [Suspect]
     Route: 048

REACTIONS (4)
  - APHAGIA [None]
  - HAEMATOCHEZIA [None]
  - DIARRHOEA [None]
  - OFF LABEL USE [None]
